FAERS Safety Report 12512151 (Version 2)
Quarter: 2016Q3

REPORT INFORMATION
  Report Type: Spontaneous
  Country: US (occurrence: US)
  Receive Date: 20160630
  Receipt Date: 20160818
  Transmission Date: 20161109
  Serious: Yes (Hospitalization)
  Sender: FDA-Public Use
  Company Number: US-JNJFOC-20160521467

PATIENT
  Age: 66 Year
  Sex: Female

DRUGS (1)
  1. XARELTO [Suspect]
     Active Substance: RIVAROXABAN
     Indication: DEEP VEIN THROMBOSIS
     Route: 048
     Dates: start: 20151202, end: 20151208

REACTIONS (4)
  - Epistaxis [Recovered/Resolved]
  - Upper gastrointestinal haemorrhage [Unknown]
  - Acute kidney injury [Unknown]
  - Coagulopathy [Unknown]

NARRATIVE: CASE EVENT DATE: 20151208
